FAERS Safety Report 4865532-0 (Version None)
Quarter: 2005Q4

REPORT INFORMATION
  Report Type: 
  Country: None (occurrence: None)
  Receive Date: 20051223
  Receipt Date: 20051213
  Transmission Date: 20060501
  Serious: Yes (Hospitalization)
  Sender: FDA-Public Use
  Company Number: KE-GLAXOSMITHKLINE-B0379503B

PATIENT

DRUGS (3)
  1. NEVIRAPINE [Suspect]
     Indication: ANTIVIRAL PROPHYLAXIS
     Dosage: 2MGK SINGLE DOSE
     Route: 048
     Dates: start: 20040922
  2. COMBIVIR [Suspect]
     Indication: ANTIVIRAL PROPHYLAXIS
     Dosage: 1TAB TWICE PER DAY
     Dates: start: 20040616
  3. NEVIRAPINE [Suspect]
     Dosage: 200MG SEE DOSAGE TEXT
     Dates: start: 20040616

REACTIONS (4)
  - BLISTER [None]
  - DRUG EXPOSURE DURING PREGNANCY [None]
  - DRUG EXPOSURE VIA BREAST MILK [None]
  - THERMAL BURN [None]
